FAERS Safety Report 19303896 (Version 5)
Quarter: 2022Q1

REPORT INFORMATION
  Report Type: Spontaneous
  Country: US (occurrence: US)
  Receive Date: 20210525
  Receipt Date: 20220222
  Transmission Date: 20220423
  Serious: Yes (Other)
  Sender: FDA-Public Use
  Company Number: US-PFIZER INC-2021465646

PATIENT
  Age: 79 Year
  Sex: Female

DRUGS (1)
  1. XELJANZ [Suspect]
     Active Substance: TOFACITINIB CITRATE
     Indication: Arthritis
     Dosage: 5 MG, 2X/DAY

REACTIONS (7)
  - Epistaxis [Unknown]
  - Nasal septum disorder [Unknown]
  - Road traffic accident [Unknown]
  - Stress [Unknown]
  - Cardiac disorder [Unknown]
  - Off label use [Unknown]
  - Food allergy [Unknown]
